FAERS Safety Report 8943288 (Version 1)
Quarter: 2012Q4

REPORT INFORMATION
  Report Type: Spontaneous
  Country: AT (occurrence: None)
  Receive Date: 20121123
  Receipt Date: 20121123
  Transmission Date: 20130627
  Serious: Yes (Hospitalization)
  Sender: FDA-Public Use
  Company Number: DSA_61028_2012

PATIENT
  Age: 66 Year
  Sex: Male

DRUGS (5)
  1. 5-FU [Suspect]
     Indication: RECTAL CANCER
     Dates: start: 20120820
  2. AFLIBERCEPT [Suspect]
     Indication: RECTAL CANCER
     Dosage: Every Cycle Intravenous drip), {4 mg/kg, Every cycle Intravenous drip)
     Route: 041
  3. IRINOTECAN [Suspect]
     Indication: RECTAL CANCER
     Dates: start: 20120820, end: 20120820
  4. IRINOTECAN [Suspect]
     Indication: RECTAL CANCER
     Dates: start: 20120806, end: 20120806
  5. LEUCOVORIN [Suspect]
     Indication: RECTAL CANCER
     Dates: start: 20120820

REACTIONS (3)
  - Abdominal pain [None]
  - Abscess [None]
  - Diarrhoea [None]
